FAERS Safety Report 17469888 (Version 4)
Quarter: 2020Q1

REPORT INFORMATION
  Report Type: Spontaneous
  Country: US (occurrence: US)
  Receive Date: 20200227
  Receipt Date: 20200323
  Transmission Date: 20200409
  Serious: Yes (Other)
  Sender: FDA-Public Use
  Company Number: NVSC2020US051911

PATIENT
  Age: 91 Year
  Sex: Male

DRUGS (2)
  1. BEOVU [Suspect]
     Active Substance: BROLUCIZUMAB-DBLL
     Indication: NEOVASCULAR AGE-RELATED MACULAR DEGENERATION
     Dosage: 0.05 ML, UNKNOWN (RIGHT)
     Route: 031
     Dates: start: 20191223, end: 20200210
  2. BEOVU [Suspect]
     Active Substance: BROLUCIZUMAB-DBLL
     Dosage: 0.05 ML, UNKNOWN (LEFT EYE)
     Route: 031
     Dates: start: 20200113

REACTIONS (5)
  - Vision blurred [Unknown]
  - Vitreous floaters [Unknown]
  - Vitreous detachment [Recovering/Resolving]
  - Eye inflammation [Not Recovered/Not Resolved]
  - Vitritis [Recovering/Resolving]

NARRATIVE: CASE EVENT DATE: 20200215
